FAERS Safety Report 5688657-9 (Version None)
Quarter: 2008Q1

REPORT INFORMATION
  Report Type: 
  Country: None (occurrence: None)
  Receive Date: 20080331
  Receipt Date: 20080328
  Transmission Date: 20080703
  Serious: Yes (Death)
  Sender: FDA-Public Use
  Company Number: PHRM2008FR00671

PATIENT
  Age: 49 Year
  Sex: Male
  Weight: 70 kg

DRUGS (29)
  1. GLEEVEC [Suspect]
     Indication: ACUTE LYMPHOCYTIC LEUKAEMIA
     Dosage: 800 MG DAILY
     Route: 048
     Dates: start: 20071226
  2. ZAVEDOS [Suspect]
     Indication: ACUTE LYMPHOCYTIC LEUKAEMIA
     Dosage: 20 MG DAILY
     Route: 042
     Dates: start: 20071231, end: 20080107
  3. ZAVEDOS [Suspect]
     Dosage: 20 MG DAILY
     Dates: start: 20080107, end: 20080107
  4. VINCRISTINE [Suspect]
     Dosage: 2 MG DAILY
     Route: 042
     Dates: start: 20071231, end: 20071231
  5. VINCRISTINE [Suspect]
     Dosage: 2 MG DAILY
     Route: 042
     Dates: start: 20080107, end: 20080107
  6. VINCRISTINE [Suspect]
     Dosage: 2 MG DAILY
     Route: 042
     Dates: start: 20080114, end: 20080114
  7. ENDOXAN [Suspect]
     Route: 042
     Dates: start: 20080102, end: 20080102
  8. ENDOXAN [Suspect]
     Dates: start: 20080110, end: 20080110
  9. ENDOXAN [Suspect]
     Dates: start: 20080114, end: 20080114
  10. UROMITEXAN [Suspect]
  11. SOLU-MEDROL [Suspect]
     Dosage: 100 MG DAILY
     Dates: start: 20071226, end: 20080111
  12. METHOTREXATE [Suspect]
     Indication: ACUTE LYMPHOCYTIC LEUKAEMIA
     Dosage: 15 MG/SECOND
     Route: 037
     Dates: start: 20080102, end: 20080114
  13. ARACYTIN [Suspect]
     Indication: ACUTE LYMPHOCYTIC LEUKAEMIA
     Dosage: 40 MG ACCORDING TO THE COURSE
     Route: 037
     Dates: start: 20080102, end: 20080102
  14. ARACYTIN [Suspect]
     Route: 037
     Dates: start: 20080110, end: 20080110
  15. ARACYTIN [Suspect]
     Route: 037
     Dates: start: 20080114, end: 20080114
  16. MOPRAL [Concomitant]
     Dates: start: 20071226
  17. LASILIX [Concomitant]
     Dates: start: 20071226
  18. XANAX [Concomitant]
     Dates: start: 20071226
  19. BACTRIM [Concomitant]
     Dates: start: 20071226
  20. ZELITREX                                /DEN/ [Concomitant]
     Dates: start: 20071226
  21. HEPARIN [Suspect]
     Route: 042
     Dates: start: 20071226, end: 20080118
  22. EFFEXOR [Suspect]
     Dosage: 37.5 MG PER DAY
     Route: 048
     Dates: start: 20080107, end: 20080118
  23. ROCEPHIN [Concomitant]
     Dosage: 2 G DAILY
     Dates: start: 20080101
  24. GENTAMICIN [Concomitant]
     Dosage: 80 MG DAILY
     Dates: start: 20071230
  25. VANCOMYCIN [Concomitant]
     Route: 042
     Dates: start: 20080109
  26. TRIMEPRAZINE TAB [Concomitant]
     Dates: start: 20080112
  27. VITAMIN B 1-6-12 [Concomitant]
     Dates: start: 20071226
  28. ZYLORIC [Concomitant]
     Dates: start: 20071226, end: 20080107
  29. ANAFRANIL [Concomitant]
     Dates: start: 20071230, end: 20080106

REACTIONS (11)
  - ASPERGILLOSIS [None]
  - BACTERIAL INFECTION [None]
  - COMPUTERISED TOMOGRAM ABNORMAL [None]
  - FUNGUS SEROLOGY TEST POSITIVE [None]
  - GENERAL PHYSICAL HEALTH DETERIORATION [None]
  - OXYGEN SATURATION DECREASED [None]
  - PULMONARY HAEMORRHAGE [None]
  - PYREXIA [None]
  - SEVERE ACUTE RESPIRATORY SYNDROME [None]
  - VENTRICULAR FIBRILLATION [None]
  - WHEEZING [None]
